FAERS Safety Report 18936178 (Version 1)
Quarter: 2021Q1

REPORT INFORMATION
  Report Type: Report from Study
  Country: None (occurrence: US)
  Receive Date: 20210225
  Receipt Date: 20210225
  Transmission Date: 20210420
  Serious: Yes (Hospitalization, Other)
  Sender: FDA-Public Use
  Company Number: US-ABBVIE-21K-163-3739960-00

PATIENT
  Age: 55 Year
  Sex: Female
  Weight: 118.04 kg

DRUGS (2)
  1. RINVOQ [Suspect]
     Active Substance: UPADACITINIB
     Indication: RHEUMATOID ARTHRITIS
     Route: 048
     Dates: start: 2019, end: 20210117
  2. RINVOQ [Suspect]
     Active Substance: UPADACITINIB
     Indication: RHEUMATOID ARTHRITIS

REACTIONS (7)
  - Muscle rupture [Unknown]
  - Dyspnoea [Recovered/Resolved]
  - Deep vein thrombosis [Recovered/Resolved]
  - Blood pressure decreased [Recovered/Resolved]
  - Prothrombin time abnormal [Unknown]
  - Ventricular dysfunction [Recovered/Resolved]
  - Pulmonary embolism [Recovered/Resolved]

NARRATIVE: CASE EVENT DATE: 202009
